FAERS Safety Report 15324886 (Version 11)
Quarter: 2019Q2

REPORT INFORMATION
  Report Type: Spontaneous
  Country: CA (occurrence: CA)
  Receive Date: 20180828
  Receipt Date: 20190614
  Transmission Date: 20190711
  Serious: Yes (Other)
  Sender: FDA-Public Use
  Company Number: CA-CELLTRION INC.-2018CA020803

PATIENT

DRUGS (24)
  1. INFLECTRA [Suspect]
     Active Substance: INFLIXIMAB-DYYB
     Dosage: 700MG MAINTENANCE EVERY 4 WEEKS
     Route: 042
     Dates: start: 20190409
  2. INFLECTRA [Suspect]
     Active Substance: INFLIXIMAB-DYYB
     Dosage: 700MG MAINTENANCE EVERY 4 WEEKS
     Route: 042
     Dates: start: 20190503
  3. INFLECTRA [Suspect]
     Active Substance: INFLIXIMAB-DYYB
     Dosage: 700 MG, MAINTENANCE EVERY 4 WEEKS
     Route: 042
     Dates: start: 20181015
  4. INFLECTRA [Suspect]
     Active Substance: INFLIXIMAB-DYYB
     Dosage: 700MG MAINTENANCE EVERY 4 WEEKS
     Route: 042
     Dates: start: 20181115
  5. ACETAMINOPHEN. [Concomitant]
     Active Substance: ACETAMINOPHEN
     Indication: PROPHYLAXIS
     Dosage: 650 MG, UNK
     Dates: start: 20181115, end: 20190110
  6. DIPHENHYDRAMINE. [Concomitant]
     Active Substance: DIPHENHYDRAMINE
     Dosage: 50 MG PER OS
     Route: 048
     Dates: start: 20190110, end: 20190110
  7. INFLECTRA [Suspect]
     Active Substance: INFLIXIMAB-DYYB
     Indication: COLITIS ULCERATIVE
     Dosage: 700MG (10 MG/KG), WEEK 0, 2 AND WEEK 6 AND Q 8 WEEKS THEREAFTER
     Route: 042
     Dates: start: 20180530, end: 20180620
  8. SOLU-MEDROL [Concomitant]
     Active Substance: METHYLPREDNISOLONE SODIUM SUCCINATE
     Dosage: UNK
     Route: 042
  9. INFLECTRA [Suspect]
     Active Substance: INFLIXIMAB-DYYB
     Dosage: 700MG MAINTENANCE EVERY 4 WEEKS
     Route: 042
     Dates: start: 20190110
  10. INFLECTRA [Suspect]
     Active Substance: INFLIXIMAB-DYYB
     Dosage: 700MG MAINTENANCE EVERY 4 WEEKS
     Route: 042
     Dates: start: 20190531
  11. ZOLOFT [Concomitant]
     Active Substance: SERTRALINE HYDROCHLORIDE
     Dosage: 75 MG, DAILY
     Route: 048
  12. INFLECTRA [Suspect]
     Active Substance: INFLIXIMAB-DYYB
     Dosage: 700 MG, MAINTENANCE EVERY 4 WEEKS
     Route: 042
     Dates: start: 20180719
  13. INFLECTRA [Suspect]
     Active Substance: INFLIXIMAB-DYYB
     Dosage: 700 MG, MAINTENANCE EVERY 4 WEEKS
     Route: 042
     Dates: start: 20180919
  14. MEZAVANT [Concomitant]
     Active Substance: MESALAMINE
     Dosage: 4.8 G, DAILY
     Route: 048
  15. DIPHENHYDRAMINE. [Concomitant]
     Active Substance: DIPHENHYDRAMINE
     Indication: PROPHYLAXIS
     Dosage: 50 MG PER OS
     Dates: start: 20181115, end: 20190110
  16. INFLECTRA [Suspect]
     Active Substance: INFLIXIMAB-DYYB
     Dosage: 700 MG, MAINTENANCE EVERY 4 WEEKS
     Route: 042
     Dates: start: 20180816
  17. INFLECTRA [Suspect]
     Active Substance: INFLIXIMAB-DYYB
     Dosage: 700MG MAINTENANCE EVERY 4 WEEKS
     Route: 042
     Dates: start: 20181211
  18. INFLECTRA [Suspect]
     Active Substance: INFLIXIMAB-DYYB
     Dosage: 700MG MAINTENANCE EVERY 4 WEEKS
     Route: 042
     Dates: start: 20190308
  19. PREDNISONE. [Concomitant]
     Active Substance: PREDNISONE
     Dosage: 40 MG, CURRENTLY AND TAPERING DOSE; 16 WEEK TAPER
     Dates: start: 201806
  20. ACETAMINOPHEN. [Concomitant]
     Active Substance: ACETAMINOPHEN
     Dosage: 650 MG, UNK
     Route: 048
     Dates: start: 20190110, end: 20190110
  21. INFLECTRA [Suspect]
     Active Substance: INFLIXIMAB-DYYB
     Dosage: 700MG MAINTENANCE EVERY 4 WEEKS
     Route: 042
     Dates: start: 20190214
  22. ATIVAN [Concomitant]
     Active Substance: LORAZEPAM
     Dosage: UNK, AS NEEDED
  23. MEZAVANT [Concomitant]
     Active Substance: MESALAMINE
     Dosage: 2.4 G, DAILY
     Route: 048
     Dates: start: 2014
  24. MEZAVANT [Concomitant]
     Active Substance: MESALAMINE
     Dosage: 3.6 G, DAILY
     Route: 048

REACTIONS (8)
  - Animal bite [Recovering/Resolving]
  - Fatigue [Unknown]
  - Off label use [Unknown]
  - Oral disorder [Recovered/Resolved]
  - Condition aggravated [Recovering/Resolving]
  - Therapeutic product effect incomplete [Recovering/Resolving]
  - Dizziness [Unknown]
  - Blood pressure fluctuation [Unknown]

NARRATIVE: CASE EVENT DATE: 20180530
